FAERS Safety Report 9275463 (Version 1)
Quarter: 2013Q2

REPORT INFORMATION
  Report Type: Spontaneous
  Country: US (occurrence: US)
  Receive Date: 20130507
  Receipt Date: 20130507
  Transmission Date: 20140414
  Serious: No
  Sender: FDA-Public Use
  Company Number: US-PFIZER INC-2013140361

PATIENT
  Sex: Male

DRUGS (2)
  1. LYRICA [Suspect]
     Indication: NEUROPATHY PERIPHERAL
     Dosage: 150 MG, 4X/DAY
     Route: 048
     Dates: start: 2010
  2. LYRICA [Suspect]
     Dosage: 150 MG, 4X/DAY
     Route: 048
     Dates: start: 2013

REACTIONS (6)
  - Hyperhidrosis [Unknown]
  - Nasopharyngitis [Unknown]
  - Influenza [Unknown]
  - Discomfort [Unknown]
  - Formication [Unknown]
  - Drug withdrawal syndrome [Unknown]
